FAERS Safety Report 6578438-6 (Version None)
Quarter: 2010Q1

REPORT INFORMATION
  Report Type: 
  Country: None (occurrence: None)
  Receive Date: 20100211
  Receipt Date: 20091221
  Transmission Date: 20100710
  Serious: No
  Sender: FDA-Public Use
  Company Number: US-BAYER-200943086NA

PATIENT
  Age: 22 Year
  Sex: Female
  Weight: 51 kg

DRUGS (1)
  1. MIRENA [Suspect]
     Indication: CONTRACEPTION
     Dosage: CONTINUOUS DELIVERY
     Route: 015
     Dates: start: 20091125, end: 20091125

REACTIONS (5)
  - HYPERHIDROSIS [None]
  - POST PROCEDURAL DISCOMFORT [None]
  - PROCEDURAL PAIN [None]
  - TREMOR [None]
  - VOMITING [None]
